FAERS Safety Report 8516178 (Version 3)
Quarter: 2013Q4

REPORT INFORMATION
  Report Type: Spontaneous
  Country: US (occurrence: US)
  Receive Date: 20120417
  Receipt Date: 20131015
  Transmission Date: 20140711
  Serious: No
  Sender: FDA-Public Use
  Company Number: US-ASTRAZENECA-2011SE41538

PATIENT
  Age: 59 Year
  Sex: Female

DRUGS (15)
  1. NEXIUM [Suspect]
     Dosage: EVERYDAY
     Route: 048
     Dates: start: 2007, end: 2012
  2. NEXIUM [Suspect]
     Route: 048
     Dates: start: 20100222
  3. OMEPRAZOLE [Suspect]
     Route: 048
     Dates: start: 2007
  4. MILK OF MAGNESIA [Concomitant]
     Indication: LAXATIVE SUPPORTIVE CARE
  5. FLUTICASONE PROP [Concomitant]
  6. LORATADINE [Concomitant]
  7. CYCLOBENZAPRINE [Concomitant]
  8. CABAPENTIN [Concomitant]
  9. TRAVATAN [Concomitant]
  10. VITAMIN D3 [Concomitant]
     Dosage: 5000
  11. MULTI-VITAMIN [Concomitant]
     Dosage: 5000
  12. IRON [Concomitant]
     Dosage: 5000
  13. BLACK COHOSH ROOT [Concomitant]
  14. ACYCLOVIR [Concomitant]
     Dates: start: 20090225
  15. DICYCLOMINE [Concomitant]
     Dates: start: 20090814

REACTIONS (5)
  - Osteoporosis [Unknown]
  - Ankle fracture [Unknown]
  - Carpal tunnel syndrome [Unknown]
  - Arthritis [Unknown]
  - Glaucoma [Unknown]
